FAERS Safety Report 14704188 (Version 1)
Quarter: 2018Q2

REPORT INFORMATION
  Report Type: Spontaneous
  Country: US (occurrence: US)
  Receive Date: 20180402
  Receipt Date: 20180402
  Transmission Date: 20180711
  Serious: No
  Sender: FDA-Public Use
  Company Number: US-ALLERGAN-1804477US

PATIENT
  Sex: Female

DRUGS (3)
  1. MESALAZINE - BP [Suspect]
     Active Substance: MESALAMINE
     Indication: CROHN^S DISEASE
     Dosage: 3 DF, BID
     Route: 048
     Dates: start: 2016
  2. MERCAPTOPURINE. [Concomitant]
     Active Substance: MERCAPTOPURINE
     Indication: CROHN^S DISEASE
     Dosage: ONE AND HALF TABLET, BID
     Route: 048
  3. MESALAZINE - BP [Suspect]
     Active Substance: MESALAMINE
     Dosage: UNK

REACTIONS (3)
  - Medication residue present [Not Recovered/Not Resolved]
  - Off label use [Unknown]
  - Drug ineffective [Unknown]

NARRATIVE: CASE EVENT DATE: 2016
